FAERS Safety Report 12682392 (Version 2)
Quarter: 2016Q3

REPORT INFORMATION
  Report Type: Spontaneous
  Country: CH (occurrence: CH)
  Receive Date: 20160825
  Receipt Date: 20160825
  Transmission Date: 20161109
  Serious: Yes (Hospitalization)
  Sender: FDA-Public Use
  Company Number: CH-ASTRAZENECA-2016SE88923

PATIENT
  Age: 937 Month
  Sex: Female

DRUGS (7)
  1. FLUCONAZOL [Concomitant]
     Active Substance: FLUCONAZOLE
     Indication: PRODUCT USED FOR UNKNOWN INDICATION
     Route: 042
     Dates: start: 20160721, end: 20160726
  2. DORMICUM [Concomitant]
     Active Substance: MIDAZOLAM\MIDAZOLAM HYDROCHLORIDE
     Indication: ENDOTRACHEAL INTUBATION
     Dosage: VIALS
     Route: 042
  3. MERONEM [Suspect]
     Active Substance: MEROPENEM
     Indication: PANCREATITIS NECROTISING
     Route: 042
     Dates: start: 20160705, end: 20160729
  4. NALOXONE [Concomitant]
     Active Substance: NALOXONE
  5. DIGOXIN. [Concomitant]
     Active Substance: DIGOXIN
     Route: 065
  6. FLUMAZENIL. [Concomitant]
     Active Substance: FLUMAZENIL
  7. NOREPINEPHRINE [Concomitant]
     Active Substance: NOREPINEPHRINE\NOREPINEPHRINE BITARTRATE
     Route: 042

REACTIONS (9)
  - Disturbance in attention [Not Recovered/Not Resolved]
  - Splenic haemorrhage [Unknown]
  - Myoclonus [Unknown]
  - Encephalopathy [Not Recovered/Not Resolved]
  - Quadriplegia [Unknown]
  - Opisthotonus [Unknown]
  - Extrapyramidal disorder [Unknown]
  - Pupils unequal [Unknown]
  - Meningism [Unknown]

NARRATIVE: CASE EVENT DATE: 201607
